FAERS Safety Report 4921575-X (Version None)
Quarter: 2006Q1

REPORT INFORMATION
  Report Type: 
  Country: None (occurrence: None)
  Receive Date: 20060223
  Receipt Date: 20060223
  Transmission Date: 20060701
  Serious: Yes (Hospitalization)
  Sender: FDA-Public Use
  Company Number: None

PATIENT
  Sex: Male

DRUGS (7)
  1. LISINOPRIL [Suspect]
     Indication: HYPERTENSION
     Dosage: 20 MG  BID  PO
     Route: 048
  2. ATENOLOL [Concomitant]
  3. FUROSEMIDE [Concomitant]
  4. FELODIPINE [Concomitant]
  5. POTASSIUM CHLORIDE [Concomitant]
  6. SILDENAFIL [Concomitant]
  7. CLOPIDOGREL [Concomitant]

REACTIONS (1)
  - OROPHARYNGEAL SWELLING [None]
